FAERS Safety Report 10147400 (Version 2)
Quarter: 2014Q2

REPORT INFORMATION
  Report Type: Spontaneous
  Country: IT (occurrence: IT)
  Receive Date: 20140501
  Receipt Date: 20140603
  Transmission Date: 20141212
  Serious: Yes (Hospitalization)
  Sender: FDA-Public Use
  Company Number: PHHY2014IT050282

PATIENT
  Age: 88 Year
  Sex: Male

DRUGS (5)
  1. TICLOPIDINE [Suspect]
     Indication: PROPHYLAXIS
     Dosage: 1 DF, QD
     Route: 048
  2. FERRO-GRAD [Concomitant]
     Dosage: 105 MG, UNK
  3. OMEPRAZOLE [Concomitant]
     Dosage: 20 MG, UNK
     Route: 048
  4. ENALAPRIL [Concomitant]
     Dosage: 5 MEQ, UNK
     Route: 048
  5. LECANIDIPINE [Concomitant]

REACTIONS (2)
  - Iron deficiency anaemia [Recovering/Resolving]
  - Gastrointestinal haemorrhage [Recovering/Resolving]
